FAERS Safety Report 17875049 (Version 1)
Quarter: 2020Q2

REPORT INFORMATION
  Report Type: Spontaneous
  Country: US (occurrence: US)
  Receive Date: 20200609
  Receipt Date: 20200609
  Transmission Date: 20200714
  Serious: No
  Sender: FDA-Public Use
  Company Number: US-JNJFOC-20200527667

PATIENT
  Age: 5 Year
  Sex: Female

DRUGS (1)
  1. IMODIUM A-D [Suspect]
     Active Substance: LOPERAMIDE HYDROCHLORIDE
     Indication: DISABILITY
     Route: 048

REACTIONS (3)
  - Product availability issue [Unknown]
  - Product use in unapproved indication [Unknown]
  - Off label use [Unknown]
